FAERS Safety Report 6417946-5 (Version None)
Quarter: 2009Q4

REPORT INFORMATION
  Report Type: 
  Country: None (occurrence: None)
  Receive Date: 20091028
  Receipt Date: 20091021
  Transmission Date: 20100525
  Serious: Yes (Death, Hospitalization)
  Sender: FDA-Public Use
  Company Number: B0600137A

PATIENT
  Sex: Female

DRUGS (3)
  1. ALLI [Suspect]
     Route: 048
     Dates: start: 20090501
  2. FRAGMIN [Suspect]
     Indication: PULMONARY EMBOLISM
     Route: 058
     Dates: start: 20090616
  3. ACTIVELLE [Suspect]
     Route: 048
     Dates: start: 20090601

REACTIONS (1)
  - APLASTIC ANAEMIA [None]
